FAERS Safety Report 5394358-7 (Version None)
Quarter: 2007Q3

REPORT INFORMATION
  Report Type: 
  Country: None (occurrence: None)
  Receive Date: 20070723
  Receipt Date: 20070713
  Transmission Date: 20080115
  Serious: Yes (Hospitalization, Other)
  Sender: FDA-Public Use
  Company Number: PHEH2006US08358

PATIENT
  Age: 48 Year
  Sex: Female
  Weight: 95.691 kg

DRUGS (12)
  1. ZELNORM [Suspect]
     Indication: CONSTIPATION
     Dosage: 6 MG, BID
     Route: 048
     Dates: start: 20051213, end: 20060105
  2. PERCOCET [Concomitant]
     Indication: INTERVERTEBRAL DISC DEGENERATION
     Dosage: 10/ 650  PRN
     Route: 048
     Dates: start: 19970101
  3. IBUPROFEN [Concomitant]
     Indication: INTERVERTEBRAL DISC DEGENERATION
     Dosage: 800 UNK, PRN
     Route: 048
  4. SKELAXIN [Concomitant]
     Indication: INTERVERTEBRAL DISC DEGENERATION
     Dosage: 800 UNK, PRN
     Route: 048
  5. PAXIL [Concomitant]
     Indication: DEPRESSION
     Dosage: 20 MG, QD
     Route: 048
     Dates: start: 19970101
  6. DIAZEPAM [Concomitant]
     Indication: PAIN
  7. MIRALAX [Concomitant]
  8. VALTREX [Concomitant]
     Indication: MIGRAINE
     Dosage: 1000 MG, UNK
  9. COSAMIN DS [Concomitant]
     Dosage: 3 TABS DAILY/1 WK, THEN 1-2 TABS DAILY/2 MOS
  10. LISINOPRIL AND HYDROCHLOROTHIAZIDE [Concomitant]
     Dosage: 10/12.5 MG QD
  11. XANAX [Concomitant]
     Dosage: 1 MG, QD
  12. SOMA [Concomitant]
     Indication: MUSCLE SPASMS
     Dosage: 60 MG, BID
     Route: 048
     Dates: start: 20060320

REACTIONS (39)
  - ABASIA [None]
  - ALOPECIA [None]
  - AMNESIA [None]
  - ANXIETY [None]
  - ARTHROPATHY [None]
  - ASTHENIA [None]
  - BLOOD BICARBONATE INCREASED [None]
  - BLOOD UREA DECREASED [None]
  - BURNING SENSATION [None]
  - CHONDROMALACIA [None]
  - CONDITION AGGRAVATED [None]
  - CREPITATIONS [None]
  - DISEASE RECURRENCE [None]
  - FATIGUE [None]
  - FIBROMYALGIA [None]
  - GENERAL PHYSICAL HEALTH DETERIORATION [None]
  - HYPERTENSION [None]
  - HYPOAESTHESIA [None]
  - INJURY [None]
  - MALAISE [None]
  - MIGRAINE [None]
  - MUSCLE SPASMS [None]
  - MYALGIA [None]
  - NAUSEA [None]
  - OEDEMA PERIPHERAL [None]
  - OSTEOARTHRITIS [None]
  - PAIN [None]
  - PAIN IN EXTREMITY [None]
  - PANNICULITIS [None]
  - RED BLOOD CELL SEDIMENTATION RATE INCREASED [None]
  - ROTATOR CUFF SYNDROME [None]
  - SCAR [None]
  - SKIN ULCER [None]
  - SPINAL OSTEOARTHRITIS [None]
  - SWELLING [None]
  - TENDON DISORDER [None]
  - THYROXINE FREE DECREASED [None]
  - TRAUMATIC BRAIN INJURY [None]
  - WEIGHT INCREASED [None]
